FAERS Safety Report 18602387 (Version 1)
Quarter: 2020Q4

REPORT INFORMATION
  Report Type: Spontaneous
  Country: IT (occurrence: IT)
  Receive Date: 20201211
  Receipt Date: 20201211
  Transmission Date: 20210114
  Serious: Yes (Life-Threatening, Other)
  Sender: FDA-Public Use
  Company Number: IT-AUROBINDO-AUR-APL-2020-060153

PATIENT
  Age: 71 Year
  Sex: Male

DRUGS (3)
  1. CARBOPLATIN. [Suspect]
     Active Substance: CARBOPLATIN
     Indication: COLON CANCER
     Dosage: 400 MILLIGRAM, CYCLICAL
     Route: 042
     Dates: start: 20201023
  2. TAXOTERE [Suspect]
     Active Substance: DOCETAXEL
     Indication: COLON CANCER
     Dosage: 150 MILLIGRAM, CYCLICAL
     Route: 042
     Dates: start: 20201023
  3. FLUOROURACIL. [Suspect]
     Active Substance: FLUOROURACIL
     Indication: COLON CANCER
     Dosage: 7500 MILLIGRAM, CYCLICAL
     Route: 042
     Dates: start: 20201113

REACTIONS (1)
  - Neutropenia [Recovering/Resolving]

NARRATIVE: CASE EVENT DATE: 20201123
